FAERS Safety Report 10501008 (Version 1)
Quarter: 2014Q4

REPORT INFORMATION
  Report Type: Spontaneous
  Country: US (occurrence: None)
  Receive Date: 20141003
  Receipt Date: 20141003
  Transmission Date: 20150528
  Serious: Yes (Disabling, Other)
  Sender: FDA-Public Use
  Company Number: None

PATIENT
  Age: 25 Year
  Sex: Female
  Weight: 81.65 kg

DRUGS (1)
  1. CLONAZEPAM. [Suspect]
     Active Substance: CLONAZEPAM
     Indication: ANXIETY

REACTIONS (26)
  - Headache [None]
  - Palpitations [None]
  - Panic attack [None]
  - Insomnia [None]
  - Depersonalisation [None]
  - Depression [None]
  - Incorrect drug administration duration [None]
  - Anxiety [None]
  - Weight increased [None]
  - Thinking abnormal [None]
  - Educational problem [None]
  - Metamorphopsia [None]
  - Vomiting [None]
  - Ear discomfort [None]
  - Loss of employment [None]
  - Psychotic disorder [None]
  - Tremor [None]
  - Derealisation [None]
  - Bedridden [None]
  - Withdrawal syndrome [None]
  - Apparent death [None]
  - Agitation [None]
  - Nervous system disorder [None]
  - Cognitive disorder [None]
  - Anger [None]
  - Memory impairment [None]
